FAERS Safety Report 5288771-6 (Version None)
Quarter: 2007Q2

REPORT INFORMATION
  Report Type: 
  Country: None (occurrence: None)
  Receive Date: 20070405
  Receipt Date: 20070322
  Transmission Date: 20071010
  Serious: Yes (Other)
  Sender: FDA-Public Use
  Company Number: GB-ELI_LILLY_AND_COMPANY-GB200607001722

PATIENT
  Age: 10 Year
  Sex: Male

DRUGS (5)
  1. STRATTERA [Suspect]
     Indication: ATTENTION DEFICIT/HYPERACTIVITY DISORDER
     Dosage: 40 MG, UNK
     Route: 048
  2. STRATTERA [Suspect]
     Dosage: 60 MG, UNK
     Route: 048
     Dates: start: 20060531, end: 20060704
  3. STRATTERA [Suspect]
     Dosage: 40 MG, UNK
     Route: 048
  4. EQUASYM [Concomitant]
     Dosage: 30 MG, UNK
     Route: 048
     Dates: start: 20050101
  5. RISPERIDONE [Concomitant]
     Dosage: 0.75 MG, UNK
     Route: 048
     Dates: start: 20050801

REACTIONS (10)
  - APATHY [None]
  - CHILLS [None]
  - DIARRHOEA [None]
  - FEELING COLD [None]
  - HEADACHE [None]
  - INFLUENZA LIKE ILLNESS [None]
  - INSOMNIA [None]
  - PAIN IN EXTREMITY [None]
  - POLLAKIURIA [None]
  - URINARY RETENTION [None]
